FAERS Safety Report 6967678-X (Version None)
Quarter: 2010Q3

REPORT INFORMATION
  Report Type: 
  Country: None (occurrence: None)
  Receive Date: 20100907
  Receipt Date: 20100821
  Transmission Date: 20110219
  Serious: No
  Sender: FDA-Public Use
  Company Number: US-PFIZER INC-2010106177

PATIENT
  Sex: Female
  Weight: 200 kg

DRUGS (7)
  1. CHANTIX [Suspect]
     Indication: SMOKING CESSATION THERAPY
     Dosage: 0.5 MG, 1X/DAY
     Route: 048
     Dates: start: 20100301
  2. CHANTIX [Suspect]
     Dosage: 1 MG, 2X/DAY
     Route: 048
     Dates: start: 20100301, end: 20100401
  3. CHANTIX [Suspect]
     Dosage: 1 MG, UNK
     Dates: start: 20100501, end: 20100501
  4. CHANTIX [Suspect]
     Dosage: 1 MG, UNK
     Dates: start: 20100501, end: 20100601
  5. KLONOPIN [Concomitant]
     Indication: ANXIETY
     Dosage: UNK
  6. KLONOPIN [Concomitant]
     Indication: HYPERTENSION
  7. MORPHINE [Concomitant]
     Indication: PANCREATITIS CHRONIC
     Dosage: UNK

REACTIONS (2)
  - RASH [None]
  - SCAR [None]
